FAERS Safety Report 21786246 (Version 1)
Quarter: 2022Q4

REPORT INFORMATION
  Report Type: Spontaneous
  Country: GB (occurrence: GB)
  Receive Date: 20221228
  Receipt Date: 20221228
  Transmission Date: 20230112
  Serious: Yes (Other)
  Sender: FDA-Public Use
  Company Number: GB-MHRA-TPP10008006C3519262YC1670322061747

PATIENT
  Age: 95 Year
  Sex: Female
  Weight: 37 kg

DRUGS (10)
  1. ALENDRONIC ACID [Suspect]
     Active Substance: ALENDRONIC ACID
     Indication: Product used for unknown indication
     Route: 065
     Dates: start: 20220622
  2. CALCI D [Concomitant]
     Indication: Product used for unknown indication
     Dosage: 1 DOSAGE FORM, ONCE A DAY
     Route: 065
     Dates: start: 20221007
  3. CARBOMER [Concomitant]
     Active Substance: CARBOMER
     Indication: Product used for unknown indication
     Dosage: 2 GTT DROPS, TWO TIMES A DAY(ONE DROP EACH EYE)
     Route: 065
     Dates: start: 20221110
  4. CHLORAMPHENICOL [Concomitant]
     Active Substance: CHLORAMPHENICOL
     Indication: Product used for unknown indication
     Dosage: 2 GTT DROPS, FOUR TIMES/DAY(ONE DROP BOTH EYES FOR 5 DAYS AND THEN START VISCOTEARS)
     Route: 065
     Dates: start: 20221110, end: 20221115
  5. CITALOPRAM [Concomitant]
     Active Substance: CITALOPRAM HYDROBROMIDE
     Indication: Product used for unknown indication
     Dosage: 1 DOSAGE FORM, ONCE A DAY(IN THE MORNING)
     Route: 065
     Dates: start: 20221007
  6. DIORALYTE [Concomitant]
     Active Substance: CITRIC ACID MONOHYDRATE\DEXTROSE\POTASSIUM CATION\SODIUM CHLORIDE
     Indication: Product used for unknown indication
     Dosage: 1 DOSAGE FORM
     Route: 065
     Dates: start: 20221007, end: 20221017
  7. POLYETHYLENE GLYCOLS [Concomitant]
     Active Substance: POLYETHYLENE GLYCOLS
     Indication: Product used for unknown indication
     Dosage: 1 DOSAGE FORM
     Route: 065
     Dates: start: 20221011, end: 20221110
  8. OMEPRAZOLE [Concomitant]
     Active Substance: OMEPRAZOLE
     Indication: Product used for unknown indication
     Dosage: 1 DOSAGE FORM, ONCE A DAY(IN THE MORNING)
     Route: 065
     Dates: start: 20221007
  9. OLOPATADINE [Concomitant]
     Active Substance: OLOPATADINE
     Indication: Product used for unknown indication
     Dosage: 1 GTT DROPS, TWO TIMES A DAY
     Route: 065
     Dates: start: 20221007, end: 20221106
  10. SENNA [Concomitant]
     Active Substance: SENNA LEAF\SENNOSIDES\SENNOSIDES A AND B
     Indication: Product used for unknown indication
     Dosage: 1 DOSAGE FORM, ONCE A DAY(IN THE EVENING)
     Route: 065
     Dates: start: 20221115

REACTIONS (1)
  - Gastrointestinal disorder [Recovered/Resolved]
